FAERS Safety Report 13403475 (Version 1)
Quarter: 2017Q2

REPORT INFORMATION
  Report Type: Spontaneous
  Country: US (occurrence: US)
  Receive Date: 20170404
  Receipt Date: 20170404
  Transmission Date: 20170830
  Serious: Yes (Disabling)
  Sender: FDA-Public Use
  Company Number: None

PATIENT
  Age: 49 Year
  Sex: Male
  Weight: 94.5 kg

DRUGS (7)
  1. IBUPROFEN. [Concomitant]
     Active Substance: IBUPROFEN
  2. BUPROPION XL [Suspect]
     Active Substance: BUPROPION
     Indication: DEPRESSION
     Dosage: ?          QUANTITY:1 TABLET(S);?
     Route: 048
     Dates: start: 20170310, end: 20170404
  3. LISINOPRIL. [Concomitant]
     Active Substance: LISINOPRIL
  4. BUPROPION. [Concomitant]
     Active Substance: BUPROPION
  5. NAPROXEN. [Concomitant]
     Active Substance: NAPROXEN
  6. ASPIRIN. [Concomitant]
     Active Substance: ASPIRIN
  7. TESTOSTERONE. [Concomitant]
     Active Substance: TESTOSTERONE

REACTIONS (5)
  - Myalgia [None]
  - Headache [None]
  - Weight increased [None]
  - Disturbance in attention [None]
  - Product substitution issue [None]

NARRATIVE: CASE EVENT DATE: 20170327
